FAERS Safety Report 11091470 (Version 2)
Quarter: 2015Q2

REPORT INFORMATION
  Report Type: Spontaneous
  Country: US (occurrence: US)
  Receive Date: 20150505
  Receipt Date: 20150514
  Transmission Date: 20150821
  Serious: Yes (Death, Hospitalization)
  Sender: FDA-Public Use
  Company Number: US-CELGENE-USA-2015041495

PATIENT
  Age: 72 Year
  Sex: Male

DRUGS (8)
  1. POMALYST [Suspect]
     Active Substance: POMALIDOMIDE
     Indication: PLASMA CELL MYELOMA
     Dosage: 4 MILLIGRAM
     Route: 048
     Dates: start: 20150323, end: 20150408
  2. METOPROLOL [Concomitant]
     Active Substance: METOPROLOL
     Indication: CHEST PAIN
  3. METOPROLOL [Concomitant]
     Active Substance: METOPROLOL
     Indication: ARTERIOSCLEROSIS CORONARY ARTERY
     Route: 048
     Dates: start: 2002
  4. ISOSORBIDE [Concomitant]
     Active Substance: ISOSORBIDE
     Indication: ARTERIOSCLEROSIS CORONARY ARTERY
     Route: 048
     Dates: start: 2002
  5. ASA [Concomitant]
     Active Substance: ASPIRIN
     Indication: CHEST PAIN
  6. PLAVIX [Concomitant]
     Active Substance: CLOPIDOGREL BISULFATE
     Indication: ARTERIOSCLEROSIS CORONARY ARTERY
     Route: 048
     Dates: start: 2002
  7. ZOCOR [Concomitant]
     Active Substance: SIMVASTATIN
     Indication: ARTERIOSCLEROSIS CORONARY ARTERY
     Route: 048
     Dates: start: 2002
  8. ASA [Concomitant]
     Active Substance: ASPIRIN
     Indication: ARTERIOSCLEROSIS CORONARY ARTERY
     Route: 048
     Dates: start: 2002

REACTIONS (1)
  - Arteriosclerosis [Fatal]

NARRATIVE: CASE EVENT DATE: 20150408
